FAERS Safety Report 4355932-X (Version None)
Quarter: 2004Q2

REPORT INFORMATION
  Report Type: 
  Country: None (occurrence: None)
  Receive Date: 20040511
  Receipt Date: 20040430
  Transmission Date: 20050107
  Serious: Yes (Hospitalization)
  Sender: FDA-Public Use
  Company Number: US-BRISTOL-MYERS SQUIBB COMPANY-12575551

PATIENT
  Age: 62 Year
  Sex: Male
  Weight: 80 kg

DRUGS (3)
  1. COUMADIN [Suspect]
     Indication: PULMONARY EMBOLISM
     Route: 048
  2. ACCUPRIL [Concomitant]
  3. LOPRESSOR [Concomitant]

REACTIONS (3)
  - BLUE TOE SYNDROME [None]
  - OEDEMA PERIPHERAL [None]
  - PNEUMONIA [None]
